FAERS Safety Report 20543997 (Version 1)
Quarter: 2022Q1

REPORT INFORMATION
  Report Type: Spontaneous
  Country: TR (occurrence: TR)
  Receive Date: 20220303
  Receipt Date: 20220303
  Transmission Date: 20220424
  Serious: Yes (Death, Other)
  Sender: FDA-Public Use
  Company Number: TR-SA-SAC20220302000527

PATIENT
  Age: 17 Year

DRUGS (1)
  1. CEREZYME [Suspect]
     Active Substance: IMIGLUCERASE

REACTIONS (3)
  - Myocardial infarction [Fatal]
  - Gaucher^s disease type III [Fatal]
  - Disease complication [Fatal]
